FAERS Safety Report 25131163 (Version 1)
Quarter: 2025Q1

REPORT INFORMATION
  Report Type: Spontaneous
  Country: US (occurrence: US)
  Receive Date: 20250327
  Receipt Date: 20250327
  Transmission Date: 20250408
  Serious: Yes (Other)
  Sender: Kenvue
  Company Number: None

PATIENT
  Age: 43 Year
  Sex: Female

DRUGS (6)
  1. DIPHENHYDRAMINE HYDROCHLORIDE [Interacting]
     Active Substance: DIPHENHYDRAMINE HYDROCHLORIDE
     Indication: Insomnia
     Route: 065
  2. TRAZODONE [Interacting]
     Active Substance: TRAZODONE HYDROCHLORIDE
     Indication: Insomnia
     Route: 065
  3. DULOXETINE [Interacting]
     Active Substance: DULOXETINE
     Indication: Anxiety
     Route: 065
  4. DULOXETINE [Interacting]
     Active Substance: DULOXETINE
     Indication: Depression
  5. ASENAPINE [Interacting]
     Active Substance: ASENAPINE
     Indication: Mood swings
     Route: 065
  6. FENTANYL [Suspect]
     Active Substance: FENTANYL
     Indication: Product used for unknown indication
     Route: 065

REACTIONS (3)
  - Serotonin syndrome [Recovering/Resolving]
  - Drug abuse [Unknown]
  - Drug interaction [Unknown]
